FAERS Safety Report 25540857 (Version 1)
Quarter: 2025Q3

REPORT INFORMATION
  Report Type: Spontaneous
  Country: GB (occurrence: GB)
  Receive Date: 20250710
  Receipt Date: 20250710
  Transmission Date: 20251021
  Serious: Yes (Life-Threatening, Hospitalization, Other)
  Sender: SUNOVION
  Company Number: None

PATIENT

DRUGS (7)
  1. ESTRADIOL\NORETHINDRONE ACETATE\RELUGOLIX [Suspect]
     Active Substance: ESTRADIOL\NORETHINDRONE ACETATE\RELUGOLIX
     Indication: Uterine leiomyoma
     Dosage: 1 TABLET ONCE A DAY
     Route: 065
     Dates: start: 20240129, end: 20240405
  2. TRANEXAMIC ACID [Concomitant]
     Active Substance: TRANEXAMIC ACID
     Route: 050
  3. ACCORD-UK FERROUS SULFATE [Concomitant]
     Route: 065
  4. FOLIC ACID [Concomitant]
     Active Substance: FOLIC ACID
     Route: 065
  5. GOSERELIN [Concomitant]
     Active Substance: GOSERELIN
     Route: 050
  6. APIXABAN [Concomitant]
     Active Substance: APIXABAN
     Route: 065
  7. ENOXAPARIN [Concomitant]
     Active Substance: ENOXAPARIN
     Route: 050

REACTIONS (2)
  - Thrombosis [Recovered/Resolved]
  - Deep vein thrombosis [Unknown]

NARRATIVE: CASE EVENT DATE: 20240301
